FAERS Safety Report 20944337 (Version 2)
Quarter: 2022Q2

REPORT INFORMATION
  Report Type: Spontaneous
  Country: US (occurrence: US)
  Receive Date: 20220610
  Receipt Date: 20220630
  Transmission Date: 20220721
  Serious: Yes (Hospitalization)
  Sender: FDA-Public Use
  Company Number: US-Global Blood Therapeutics Inc-US-GBT-22-02892

PATIENT
  Sex: Female

DRUGS (3)
  1. OXBRYTA [Suspect]
     Active Substance: VOXELOTOR
     Indication: Sickle cell disease
     Dates: start: 2022, end: 202205
  2. OXBRYTA [Suspect]
     Active Substance: VOXELOTOR
     Dates: start: 202205
  3. OXBRYTA [Suspect]
     Active Substance: VOXELOTOR
     Dates: start: 2022, end: 2022

REACTIONS (6)
  - Sickle cell anaemia with crisis [Unknown]
  - Dehydration [Unknown]
  - Grief reaction [Unknown]
  - Diarrhoea [Not Recovered/Not Resolved]
  - Abdominal pain upper [Not Recovered/Not Resolved]
  - Off label use [Unknown]

NARRATIVE: CASE EVENT DATE: 20220101
